FAERS Safety Report 7817340-6 (Version None)
Quarter: 2011Q4

REPORT INFORMATION
  Report Type: 
  Country: None (occurrence: None)
  Receive Date: 20111012
  Receipt Date: 20110927
  Transmission Date: 20120403
  Serious: Yes (Other)
  Sender: FDA-Public Use
  Company Number: FK201102116

PATIENT
  Age: 11 Year
  Sex: Female

DRUGS (2)
  1. DAUNORUBICIN HCL [Suspect]
     Indication: ACUTE MYELOID LEUKAEMIA
  2. CYTARABINE [Suspect]
     Indication: ACUTE MYELOID LEUKAEMIA

REACTIONS (2)
  - NAIL DISORDER [None]
  - FEBRILE NEUTROPENIA [None]
